FAERS Safety Report 9604684 (Version 6)
Quarter: 2016Q1

REPORT INFORMATION
  Report Type: Spontaneous
  Country: US (occurrence: US)
  Receive Date: 20131008
  Receipt Date: 20160218
  Transmission Date: 20160526
  Serious: No
  Sender: FDA-Public Use
  Company Number: US-PFIZER INC-2013283822

PATIENT
  Age: 63 Year
  Sex: Male
  Weight: 77.1 kg

DRUGS (7)
  1. PRAVASTATIN SODIUM. [Suspect]
     Active Substance: PRAVASTATIN SODIUM
     Indication: BLOOD CHOLESTEROL INCREASED
     Dosage: 40 MG, 1X/DAY
  2. AZOR [Suspect]
     Active Substance: AMLODIPINE BESYLATE\OLMESARTAN MEDOXOMIL
     Indication: HYPERTENSION
     Dosage: AMLODIPINE (10MG)/ OLMESARTAN MEDOXOMIL (40MG), 1X/DAY
  3. TIMOLOL MALEATE. [Suspect]
     Active Substance: TIMOLOL MALEATE
     Dosage: UNK, 2X/DAY
  4. ALPHAGAN P [Suspect]
     Active Substance: BRIMONIDINE TARTRATE
     Dosage: UNK, 2X/DAY
  5. COMBIGAN [Suspect]
     Active Substance: BRIMONIDINE TARTRATE\TIMOLOL MALEATE
     Indication: GLAUCOMA
     Dosage: UNK, TAKE THAT IN MORNING
  6. XALATAN [Suspect]
     Active Substance: LATANOPROST
     Indication: GLAUCOMA
     Dosage: 1 GTT, DAILY (1 DROP IN EACH EYE DAILY)
     Route: 047
     Dates: end: 2014
  7. MELOXICAM. [Concomitant]
     Active Substance: MELOXICAM
     Indication: BACK PAIN
     Dosage: 7.5 MG, AS NEEDED

REACTIONS (8)
  - Rash [Unknown]
  - Erythema [Unknown]
  - Dermatitis allergic [Unknown]
  - Skin lesion [Unknown]
  - Nasal disorder [Unknown]
  - Fatigue [Unknown]
  - Ocular hyperaemia [Unknown]
  - Pain in extremity [Unknown]

NARRATIVE: CASE EVENT DATE: 2014
